FAERS Safety Report 4810261-2 (Version None)
Quarter: 2005Q4

REPORT INFORMATION
  Report Type: 
  Country: None (occurrence: None)
  Receive Date: 20051026
  Receipt Date: 20051017
  Transmission Date: 20060501
  Serious: Yes (Hospitalization)
  Sender: FDA-Public Use
  Company Number: 200513384FR

PATIENT
  Age: 51 Year
  Sex: Male

DRUGS (4)
  1. ARAVA [Suspect]
     Indication: PSORIATIC ARTHROPATHY
     Route: 048
     Dates: start: 20050115, end: 20050510
  2. DAFALGAN [Suspect]
     Indication: PYREXIA
     Route: 048
     Dates: start: 20050502, end: 20050513
  3. BRISTOPEN [Concomitant]
     Indication: SUPERINFECTION
     Route: 048
     Dates: start: 20050502, end: 20050518
  4. CIPROFLOXACIN [Concomitant]
     Indication: SUPERINFECTION
     Route: 048
     Dates: start: 20050505, end: 20050510

REACTIONS (7)
  - ALANINE AMINOTRANSFERASE INCREASED [None]
  - ASPARTATE AMINOTRANSFERASE INCREASED [None]
  - BLOOD ALKALINE PHOSPHATASE INCREASED [None]
  - HEPATOCELLULAR DAMAGE [None]
  - RASH [None]
  - RASH PUSTULAR [None]
  - SUPERINFECTION [None]
